FAERS Safety Report 20703192 (Version 1)
Quarter: 2022Q2

REPORT INFORMATION
  Report Type: Spontaneous
  Country: ES (occurrence: ES)
  Receive Date: 20220413
  Receipt Date: 20220413
  Transmission Date: 20220721
  Serious: Yes (Hospitalization, Other)
  Sender: FDA-Public Use
  Company Number: ES-AEMPS-1150974

PATIENT
  Age: 84 Year
  Sex: Male

DRUGS (5)
  1. GABAPENTIN [Suspect]
     Active Substance: GABAPENTIN
     Indication: Spinal osteoarthritis
     Dosage: 300 MILLIGRAM (CE)
     Route: 048
     Dates: start: 20200520, end: 20201029
  2. LATANOPROST [Concomitant]
     Active Substance: LATANOPROST
     Indication: Open angle glaucoma
     Dosage: UNK (1.0 GTS C/24H NOC)
     Route: 047
     Dates: start: 20191204
  3. LEVOTHYROXINE SODIUM [Concomitant]
     Active Substance: LEVOTHYROXINE SODIUM
     Indication: Hypothyroidism
     Dosage: UNK (112.0 MCG A-DE)
     Route: 048
     Dates: start: 20140214
  4. IVABRADINE MYLAN [Concomitant]
     Indication: Myocardial ischaemia
     Dosage: 5 MILLIGRAM (DECE )
     Route: 048
     Dates: start: 20180404
  5. ALLOPURINOL [Concomitant]
     Active Substance: ALLOPURINOL
     Indication: Gout
     Dosage: 100 MILLIGRAM (DE)
     Route: 048
     Dates: start: 20130306

REACTIONS (4)
  - Depressed level of consciousness [Recovered/Resolved]
  - Myoclonic dystonia [Recovered/Resolved]
  - Neurological decompensation [Recovered/Resolved]
  - Somnolence [Recovered/Resolved]

NARRATIVE: CASE EVENT DATE: 20201028
